FAERS Safety Report 14852879 (Version 1)
Quarter: 2018Q2

REPORT INFORMATION
  Report Type: Spontaneous
  Country: JP (occurrence: JP)
  Receive Date: 20180507
  Receipt Date: 20180507
  Transmission Date: 20180711
  Serious: Yes (Other)
  Sender: FDA-Public Use
  Company Number: JP-ACCORD-066656

PATIENT
  Age: 72 Year
  Sex: Female

DRUGS (5)
  1. ETRETINATE [Suspect]
     Active Substance: ETRETINATE
     Indication: PSORIATIC ARTHROPATHY
  2. ADALIMUMAB [Suspect]
     Active Substance: ADALIMUMAB
     Indication: PSORIATIC ARTHROPATHY
     Dosage: AT 40-80 MG EVERY 2 WEEKS FOR 1 YEAR
  3. METHOTREXATE. [Suspect]
     Active Substance: METHOTREXATE
     Indication: PSORIATIC ARTHROPATHY
     Dosage: 8 MG/WEEK, ALSO RECEIVED 6-12 MG/WEEK FOR 5 MONTHS.
  4. CICLOSPORIN [Suspect]
     Active Substance: CYCLOSPORINE
     Indication: PSORIATIC ARTHROPATHY
     Dosage: AT 150-200 MG/DAY FOR 9 MONTHS
  5. USTEKINUMAB [Suspect]
     Active Substance: USTEKINUMAB
     Indication: PSORIATIC ARTHROPATHY
     Dosage: 45 MG EVERY 3 MONTHS FOR 7 MONTH

REACTIONS (1)
  - Breast cancer [Recovered/Resolved]
